FAERS Safety Report 25097905 (Version 1)
Quarter: 2025Q1

REPORT INFORMATION
  Report Type: Report from Study
  Country: CA (occurrence: CA)
  Receive Date: 20250320
  Receipt Date: 20250320
  Transmission Date: 20250408
  Serious: Yes (Death, Other)
  Sender: SANDOZ
  Company Number: CA-002147023-NVSC2022CA073655

PATIENT
  Sex: Male

DRUGS (5)
  1. ERELZI [Suspect]
     Active Substance: ETANERCEPT-SZZS
     Indication: Rheumatoid arthritis
     Dosage: 50 MG, QW (PRE-FILLED SYRINGE)
     Route: 058
     Dates: start: 20210611
  2. IBUPROFEN [Concomitant]
     Active Substance: IBUPROFEN
     Indication: Product used for unknown indication
     Route: 048
  3. METHOTREXATE [Concomitant]
     Active Substance: METHOTREXATE
     Indication: Product used for unknown indication
     Route: 048
     Dates: start: 1996
  4. NAPROXEN [Concomitant]
     Active Substance: NAPROXEN
     Indication: Product used for unknown indication
     Route: 048
  5. PLAQUENIL [Concomitant]
     Active Substance: HYDROXYCHLOROQUINE SULFATE
     Indication: Product used for unknown indication
     Route: 048
     Dates: start: 1996

REACTIONS (2)
  - Death [Fatal]
  - General physical health deterioration [Unknown]
